FAERS Safety Report 7420268-7 (Version None)
Quarter: 2011Q2

REPORT INFORMATION
  Report Type: 
  Country: None (occurrence: None)
  Receive Date: 20110418
  Receipt Date: 20110406
  Transmission Date: 20111010
  Serious: Yes (Other)
  Sender: FDA-Public Use
  Company Number: US-JNJFOC-20110406497

PATIENT
  Sex: Male
  Weight: 133.81 kg

DRUGS (6)
  1. STELARA [Suspect]
     Dosage: PATIENT HAS HAD 4 DOSES, WITH LAST DOSE RECEIVED ON 22-DEC-2010.
     Route: 058
  2. CORTICOSTEROIDS [Concomitant]
  3. STELARA [Suspect]
     Route: 058
  4. STELARA [Suspect]
     Route: 058
  5. STELARA [Suspect]
     Indication: PSORIASIS
     Dosage: PATIENT HAS HAD 4 DOSES, WITH LAST DOSE RECEIVED ON 22-DEC-2010.
     Route: 058
  6. TACLONEX [Concomitant]

REACTIONS (1)
  - POSTERIOR REVERSIBLE ENCEPHALOPATHY SYNDROME [None]
